FAERS Safety Report 4644904-3 (Version None)
Quarter: 2005Q2

REPORT INFORMATION
  Report Type: 
  Country: None (occurrence: None)
  Receive Date: 20050422
  Receipt Date: 20050415
  Transmission Date: 20051028
  Serious: Yes (Other)
  Sender: FDA-Public Use
  Company Number: 200511447BCC

PATIENT
  Age: 92 Year
  Sex: Female
  Weight: 49.8957 kg

DRUGS (9)
  1. ASPIRIN [Suspect]
     Indication: CEREBROVASCULAR ACCIDENT PROPHYLAXIS
     Dosage: 81 MG, QD, ORAL
     Route: 048
     Dates: start: 19950101, end: 20050403
  2. ASPIRIN [Suspect]
     Indication: MYOCARDIAL INFARCTION
     Dosage: 81 MG, QD, ORAL
     Route: 048
     Dates: start: 19950101, end: 20050403
  3. ASPIRIN [Suspect]
     Indication: PROPHYLAXIS
     Dosage: 81 MG, QD, ORAL
     Route: 048
     Dates: start: 19950101, end: 20050403
  4. SORBIDE  MONO [Concomitant]
  5. ATENOLOL [Concomitant]
  6. GLIPIZIDE [Concomitant]
  7. ENALAPRIL MALEATE [Concomitant]
  8. LIPITOR [Concomitant]
  9. B12 VITAMIN [Concomitant]

REACTIONS (2)
  - CEREBROVASCULAR ACCIDENT [None]
  - VISUAL DISTURBANCE [None]
